FAERS Safety Report 7641826-0 (Version None)
Quarter: 2011Q3

REPORT INFORMATION
  Report Type: 
  Country: None (occurrence: None)
  Receive Date: 20110728
  Receipt Date: 20110721
  Transmission Date: 20111222
  Serious: Yes (Hospitalization)
  Sender: FDA-Public Use
  Company Number: US-JNJFOC-20110709151

PATIENT
  Age: 41 Year
  Sex: Male
  Weight: 106 kg

DRUGS (2)
  1. EXTRA STRENGTH TYLENOL [Suspect]
     Indication: PAIN
     Dosage: APPROXIMATELY 8 GRAMS A DAY OVER APPROXIMATELY 72 HOURS
     Route: 065
  2. EXTRA STRENGTH TYLENOL [Suspect]
     Route: 065

REACTIONS (4)
  - OVERDOSE [None]
  - LIVER FUNCTION TEST ABNORMAL [None]
  - VOMITING [None]
  - ABDOMINAL PAIN [None]
